FAERS Safety Report 21949590 (Version 2)
Quarter: 2023Q1

REPORT INFORMATION
  Report Type: Spontaneous
  Country: FR (occurrence: FR)
  Receive Date: 20230203
  Receipt Date: 20230216
  Transmission Date: 20230417
  Serious: Yes (Other)
  Sender: FDA-Public Use
  Company Number: None

PATIENT
  Age: 33 Year
  Sex: Female
  Weight: 68 kg

DRUGS (12)
  1. KETOPROFEN [Suspect]
     Active Substance: KETOPROFEN
     Indication: Pain
     Dosage: 50 MG, ONCE/SINGLE
     Route: 042
     Dates: start: 20220616, end: 20220616
  2. SUFENTANIL [Suspect]
     Active Substance: SUFENTANIL
     Indication: Epidural anaesthesia
     Dosage: UNK
     Route: 008
     Dates: start: 20220615, end: 20220616
  3. SYNTOCINON [Suspect]
     Active Substance: OXYTOCIN
     Indication: Delivery
     Dosage: UNK
     Route: 042
     Dates: start: 20220615, end: 20220616
  4. ONDANSETRON [Suspect]
     Active Substance: ONDANSETRON
     Indication: Nausea
     Dosage: UNK
     Route: 048
     Dates: start: 20220616, end: 20220616
  5. CEFUROXIME [Suspect]
     Active Substance: CEFUROXIME
     Indication: Prophylaxis
     Dosage: 1.5 G, ONCE/SINGLE
     Route: 042
     Dates: start: 20220615, end: 20220615
  6. MISOPROSTOL [Suspect]
     Active Substance: MISOPROSTOL
     Indication: Labour induction
     Dosage: UNK
     Route: 048
     Dates: start: 20220615, end: 20220615
  7. XYLOCAINE [Suspect]
     Active Substance: LIDOCAINE HYDROCHLORIDE
     Indication: Epidural anaesthesia
     Dosage: UNK
     Route: 008
     Dates: start: 20220615, end: 20220615
  8. KETOPROFEN [Suspect]
     Active Substance: KETOPROFEN
     Indication: Pain
     Dosage: 2 DOSAGE FORM, QD
     Route: 048
     Dates: start: 20220616, end: 20220618
  9. ROPIVACAINE HYDROCHLORIDE [Suspect]
     Active Substance: ROPIVACAINE HYDROCHLORIDE
     Indication: Epidural anaesthesia
     Dosage: UNK
     Route: 008
     Dates: start: 20220615, end: 20220616
  10. ACETAMINOPHEN [Concomitant]
     Active Substance: ACETAMINOPHEN
     Indication: Product used for unknown indication
     Dosage: 1 G, QD
     Route: 042
     Dates: start: 20220616, end: 20220628
  11. LANSOPRAZOLE [Concomitant]
     Active Substance: LANSOPRAZOLE
     Indication: Product used for unknown indication
     Dosage: 15 MG, QD
     Route: 048
     Dates: start: 20220616, end: 20220628
  12. TRANSIPEG [Concomitant]
     Indication: Product used for unknown indication
     Dosage: 3 DOSAGE FORM, QD
     Route: 048
     Dates: start: 20220616, end: 20220622

REACTIONS (1)
  - Urticaria [Recovered/Resolved]

NARRATIVE: CASE EVENT DATE: 20220601
